FAERS Safety Report 5156268-X (Version None)
Quarter: 2006Q4

REPORT INFORMATION
  Report Type: 
  Country: None (occurrence: None)
  Receive Date: 20061122
  Receipt Date: 20060502
  Transmission Date: 20070319
  Serious: Yes (Hospitalization)
  Sender: FDA-Public Use
  Company Number: US-ELI_LILLY_AND_COMPANY-US200608005518

PATIENT
  Age: 48 Year
  Sex: Male
  Weight: 92.97 kg

DRUGS (1)
  1. ZYPREXA [Suspect]
     Indication: BIPOLAR DISORDER
     Dosage: 15 MG, UNK
     Dates: start: 19980101, end: 20050101

REACTIONS (6)
  - DIABETES MELLITUS [None]
  - GASTRIC BYPASS [None]
  - HYPERTENSION [None]
  - METABOLIC DISORDER [None]
  - OBESITY [None]
  - WEIGHT DECREASED [None]
